FAERS Safety Report 8739553 (Version 2)
Quarter: 2013Q4

REPORT INFORMATION
  Report Type: Spontaneous
  Country: US (occurrence: US)
  Receive Date: 20120823
  Receipt Date: 20131101
  Transmission Date: 20140711
  Serious: No
  Sender: FDA-Public Use
  Company Number: US-009507513-1208USA000412

PATIENT
  Sex: Female

DRUGS (7)
  1. JANUVIA [Suspect]
     Indication: TYPE 2 DIABETES MELLITUS
     Dosage: 100 MG, QD
     Route: 048
     Dates: start: 201204
  2. LOVASTATIN [Concomitant]
  3. DAPSONE [Concomitant]
  4. METFORMIN [Concomitant]
  5. ALLOPURINOL [Concomitant]
  6. ATENOLOL [Concomitant]
  7. LISINOPRIL [Concomitant]

REACTIONS (1)
  - Blood cholesterol abnormal [Not Recovered/Not Resolved]
